APPROVED DRUG PRODUCT: ZOVIRAX
Active Ingredient: ACYCLOVIR
Strength: 200MG **Federal Register determination that product was not discontinued or withdrawn for safety or effectiveness reasons**
Dosage Form/Route: CAPSULE;ORAL
Application: N018828 | Product #001
Applicant: PHARMOBEDIENT CONSULTING LLC
Approved: Jan 25, 1985 | RLD: Yes | RS: No | Type: DISCN